FAERS Safety Report 25529782 (Version 1)
Quarter: 2025Q3

REPORT INFORMATION
  Report Type: Spontaneous
  Country: US (occurrence: US)
  Receive Date: 20250708
  Receipt Date: 20250708
  Transmission Date: 20251021
  Serious: Yes (Hospitalization, Other)
  Sender: GLAND PHARMA LTD
  Company Number: US-GLANDPHARMA-US-2025GLNLIT01598

PATIENT
  Age: 57 Year
  Sex: Female

DRUGS (2)
  1. AMIODARONE HYDROCHLORIDE [Suspect]
     Active Substance: AMIODARONE HYDROCHLORIDE
     Indication: Atrial fibrillation
     Route: 065
  2. SIMVASTATIN [Suspect]
     Active Substance: SIMVASTATIN
     Indication: Hyperlipidaemia
     Route: 065

REACTIONS (4)
  - Rhabdomyolysis [Recovered/Resolved]
  - Hypercalcaemia [Recovered/Resolved]
  - Drug interaction [Recovered/Resolved]
  - Product use in unapproved indication [Unknown]
